FAERS Safety Report 4996740-6 (Version None)
Quarter: 2006Q2

REPORT INFORMATION
  Report Type: 
  Country: None (occurrence: None)
  Receive Date: 20060509
  Receipt Date: 20050926
  Transmission Date: 20061013
  Serious: Yes (Hospitalization, Disabling)
  Sender: FDA-Public Use
  Company Number: US-MERCK-0509USA03786

PATIENT
  Age: 50 Year
  Sex: Female
  Weight: 120 kg

DRUGS (2)
  1. VIOXX [Suspect]
     Indication: ARTHRITIS
     Route: 048
     Dates: start: 19991122, end: 20000601
  2. TYLENOL (CAPLET) [Concomitant]
     Route: 048

REACTIONS (26)
  - ACANTHOSIS [None]
  - ANXIETY [None]
  - BACK INJURY [None]
  - BEZOAR [None]
  - BLADDER NEOPLASM [None]
  - CEREBROVASCULAR ACCIDENT [None]
  - CHEST PAIN [None]
  - COLITIS [None]
  - DIABETES MELLITUS [None]
  - DIARRHOEA [None]
  - DIVERTICULITIS [None]
  - EMOTIONAL DISTRESS [None]
  - EROSIVE DUODENITIS [None]
  - GASTRIC DISORDER [None]
  - GASTRITIS [None]
  - HAEMORRHOIDS [None]
  - HEMIANOPIA [None]
  - HYPERLIPIDAEMIA [None]
  - HYPERTENSION [None]
  - INTERVERTEBRAL DISC DEGENERATION [None]
  - MITRAL VALVE INCOMPETENCE [None]
  - NON-CARDIAC CHEST PAIN [None]
  - OESOPHAGEAL DISORDER [None]
  - PAIN [None]
  - POLYTRAUMATISM [None]
  - TACHYCARDIA [None]
